FAERS Safety Report 7373231-9 (Version None)
Quarter: 2011Q1

REPORT INFORMATION
  Report Type: 
  Country: None (occurrence: None)
  Receive Date: 20110324
  Receipt Date: 20110317
  Transmission Date: 20110831
  Serious: Yes (Life-Threatening, Hospitalization, Other)
  Sender: FDA-Public Use
  Company Number: PHHY2011US23087

PATIENT
  Sex: Male

DRUGS (4)
  1. LASIX [Concomitant]
  2. GLEEVEC [Suspect]
     Dosage: 200 MG, QD
     Route: 048
     Dates: end: 20090801
  3. GLEEVEC [Suspect]
     Indication: CHRONIC MYELOID LEUKAEMIA
     Route: 048
     Dates: start: 20030601
  4. ALDACTONE [Concomitant]

REACTIONS (5)
  - OSTEOMYELITIS CHRONIC [None]
  - ASCITES [None]
  - FIBROSIS [None]
  - FEELING ABNORMAL [None]
  - ABDOMINAL ABSCESS [None]
